FAERS Safety Report 21782885 (Version 2)
Quarter: 2022Q4

REPORT INFORMATION
  Report Type: Spontaneous
  Country: US (occurrence: US)
  Receive Date: 20221227
  Receipt Date: 20221231
  Transmission Date: 20230113
  Serious: Yes (Death)
  Sender: FDA-Public Use
  Company Number: US-PFM-2022-09009

PATIENT
  Sex: Female
  Weight: 3.85 kg

DRUGS (1)
  1. HEMANGEOL [Suspect]
     Active Substance: PROPRANOLOL HYDROCHLORIDE
     Indication: Haemangioma
     Dosage: 0.6 ML, BID (2/DAY)
     Route: 048

REACTIONS (4)
  - Cardiac disorder [Fatal]
  - Pyrexia [Fatal]
  - Vomiting [Fatal]
  - Diarrhoea [Fatal]
